FAERS Safety Report 21368637 (Version 4)
Quarter: 2022Q4

REPORT INFORMATION
  Report Type: Report from Study
  Country: IL (occurrence: IL)
  Receive Date: 20220923
  Receipt Date: 20221016
  Transmission Date: 20230112
  Serious: Yes (Death, Hospitalization)
  Sender: FDA-Public Use
  Company Number: IL-ABBVIE-4128685

PATIENT
  Age: 82 Year
  Sex: Male

DRUGS (21)
  1. VENETOCLAX [Suspect]
     Active Substance: VENETOCLAX
     Indication: Chronic lymphocytic leukaemia
     Dosage: 200 MILLIGRAM
     Route: 048
     Dates: start: 20201123, end: 20201206
  2. VENETOCLAX [Suspect]
     Active Substance: VENETOCLAX
     Indication: Chronic lymphocytic leukaemia
     Dosage: 400 MILLIGRAM
     Route: 048
     Dates: start: 20201116, end: 20201122
  3. VENETOCLAX [Suspect]
     Active Substance: VENETOCLAX
     Indication: Chronic lymphocytic leukaemia
     Dosage: 100 MILLIGRAM
     Route: 048
     Dates: start: 20201101, end: 20201107
  4. VENETOCLAX [Suspect]
     Active Substance: VENETOCLAX
     Indication: Chronic lymphocytic leukaemia
     Dosage: 50 MILLIGRAM
     Route: 048
     Dates: start: 20201025, end: 20201031
  5. VENETOCLAX [Suspect]
     Active Substance: VENETOCLAX
     Indication: Chronic lymphocytic leukaemia
     Dosage: 200 MILLIGRAM
     Route: 048
     Dates: start: 20201108, end: 20201115
  6. VENETOCLAX [Suspect]
     Active Substance: VENETOCLAX
     Indication: Chronic lymphocytic leukaemia
     Dosage: 20 MILLIGRAM
     Route: 048
     Dates: start: 20201018, end: 20201024
  7. VENETOCLAX [Suspect]
     Active Substance: VENETOCLAX
     Indication: Chronic lymphocytic leukaemia
     Dosage: 200 MILLIGRAM
     Route: 048
     Dates: start: 20201207, end: 20220403
  8. AVODART [Concomitant]
     Active Substance: DUTASTERIDE
     Indication: Prophylaxis
     Dates: end: 20220403
  9. ALFUZOSIN [Concomitant]
     Active Substance: ALFUZOSIN
     Indication: Prophylaxis
  10. ZYLOL [Concomitant]
     Indication: Prophylaxis
  11. Zodorm [Concomitant]
     Indication: Insomnia
     Dates: end: 20220403
  12. CIPRALEX [Concomitant]
     Active Substance: ESCITALOPRAM OXALATE
     Indication: Depression
     Dates: end: 20220403
  13. CIPRALEX [Concomitant]
     Active Substance: ESCITALOPRAM OXALATE
     Indication: Depression
     Dates: end: 20220403
  14. OBINUTUZUMAB [Suspect]
     Active Substance: OBINUTUZUMAB
     Indication: Antiangiogenic therapy
     Route: 065
     Dates: start: 20210214, end: 20210214
  15. OBINUTUZUMAB [Suspect]
     Active Substance: OBINUTUZUMAB
     Indication: Antiangiogenic therapy
     Route: 065
     Dates: start: 20201018, end: 20201018
  16. OBINUTUZUMAB [Suspect]
     Active Substance: OBINUTUZUMAB
     Indication: Antiangiogenic therapy
     Route: 065
     Dates: start: 20201213, end: 20201213
  17. OBINUTUZUMAB [Suspect]
     Active Substance: OBINUTUZUMAB
     Indication: Antiangiogenic therapy
     Route: 065
     Dates: start: 20210110, end: 20210110
  18. OBINUTUZUMAB [Suspect]
     Active Substance: OBINUTUZUMAB
     Indication: Antiangiogenic therapy
     Route: 065
     Dates: start: 20201115, end: 20201115
  19. PFIZER-BIONTECH COVID-19 VACCINE [Concomitant]
     Active Substance: TOZINAMERAN
     Indication: COVID-19 prophylaxis
     Dosage: 1ST DOSE?ONE IN ONCE
     Route: 030
     Dates: start: 20210101, end: 20210101
  20. PFIZER-BIONTECH COVID-19 VACCINE [Concomitant]
     Active Substance: TOZINAMERAN
     Indication: COVID-19 prophylaxis
     Dosage: 2ND DOSE?ONE IN ONCE
     Route: 030
     Dates: start: 20210122, end: 20210122
  21. PFIZER-BIONTECH COVID-19 VACCINE [Concomitant]
     Active Substance: TOZINAMERAN
     Indication: COVID-19 prophylaxis
     Dosage: 3RD DOSE?ONE IN ONCE
     Route: 030
     Dates: start: 20210806, end: 20210806

REACTIONS (4)
  - COVID-19 [Fatal]
  - Rash [Recovered/Resolved]
  - Arthralgia [Unknown]
  - Dyspnoea [Recovered/Resolved]

NARRATIVE: CASE EVENT DATE: 20201129
